FAERS Safety Report 7052187-2 (Version None)
Quarter: 2010Q4

REPORT INFORMATION
  Report Type: 
  Country: None (occurrence: None)
  Receive Date: 20101019
  Receipt Date: 20101013
  Transmission Date: 20110411
  Serious: Yes (Other)
  Sender: FDA-Public Use
  Company Number: US-BRISTOL-MYERS SQUIBB COMPANY-15333990

PATIENT
  Age: 31 Year
  Sex: Male
  Weight: 74 kg

DRUGS (4)
  1. ATAZANAVIR [Suspect]
     Indication: HIV INFECTION
     Dosage: LAST DOSE ON :03OCT2010
     Route: 048
     Dates: start: 20100923
  2. RITONAVIR [Suspect]
     Indication: HIV INFECTION
     Dosage: LAST DOSE ON:03OCT2010.
     Route: 048
     Dates: start: 20100923
  3. TENOFOVIR DF + EMTRICITABINE [Suspect]
     Indication: HIV INFECTION
     Dosage: 1 DF:300/200MG LAST DOSE ON :03OCT2010.
     Route: 048
     Dates: start: 20100923
  4. HYDROCHLOROTHIAZIDE [Concomitant]
     Indication: HYPERTENSION
     Route: 048
     Dates: end: 20101003

REACTIONS (1)
  - VIITH NERVE PARALYSIS [None]
